FAERS Safety Report 8259511-3 (Version None)
Quarter: 2012Q1

REPORT INFORMATION
  Report Type: 
  Country: None (occurrence: None)
  Receive Date: 20120327
  Receipt Date: 20080820
  Transmission Date: 20120608
  Serious: Yes (Hospitalization)
  Sender: FDA-Public Use
  Company Number: PHEH2008US07365

PATIENT
  Age: 42 Year
  Sex: Male

DRUGS (1)
  1. GLEEVEC [Suspect]
     Indication: GASTROINTESTINAL STROMAL TUMOUR
     Dosage: 400 MG, QD, ORAL
     Route: 048
     Dates: start: 20071201, end: 20080819

REACTIONS (3)
  - GASTROINTESTINAL HAEMORRHAGE [None]
  - ABDOMINAL PAIN [None]
  - HAEMATOCHEZIA [None]
